FAERS Safety Report 23059094 (Version 1)
Quarter: 2023Q4

REPORT INFORMATION
  Report Type: Spontaneous
  Country: US (occurrence: None)
  Receive Date: 20231012
  Receipt Date: 20231012
  Transmission Date: 20240110
  Serious: Yes (Hospitalization)
  Sender: FDA-Public Use
  Company Number: None

PATIENT
  Sex: Male
  Weight: 95 kg

DRUGS (7)
  1. CARBOPLATIN [Suspect]
     Active Substance: CARBOPLATIN
  2. CYCLOPHOSPHAMIDE [Concomitant]
     Active Substance: CYCLOPHOSPHAMIDE
  3. ETOPOSIDE [Suspect]
     Active Substance: ETOPOSIDE
  4. IFOSFAMIDE [Concomitant]
  5. MESNA [Concomitant]
     Active Substance: MESNA
  6. NEULASTA [Concomitant]
     Active Substance: PEGFILGRASTIM
  7. TOPPTECAN [Concomitant]

REACTIONS (7)
  - Fatigue [None]
  - Pallor [None]
  - Anaemia [None]
  - Renal failure [None]
  - Hypocalcaemia [None]
  - Azotaemia [None]
  - Hyperphosphataemia [None]

NARRATIVE: CASE EVENT DATE: 20231006
